FAERS Safety Report 5441894-0 (Version None)
Quarter: 2007Q3

REPORT INFORMATION
  Report Type: 
  Country: None (occurrence: None)
  Receive Date: 20070904
  Receipt Date: 20070829
  Transmission Date: 20080115
  Serious: Yes (Other)
  Sender: FDA-Public Use
  Company Number: US-ROCHE-446428

PATIENT
  Age: 72 Year
  Sex: Female

DRUGS (13)
  1. BONIVA [Suspect]
     Indication: OSTEOPOROSIS
     Route: 048
     Dates: start: 20060101
  2. TEGRETOL [Concomitant]
  3. ELAVIL [Concomitant]
  4. FIORINAL [Concomitant]
  5. MEPROBAMATE [Concomitant]
  6. NORVASC [Concomitant]
  7. HYDROCHLOROTHIAZIDE [Concomitant]
     Dosage: REPORTED AS ^WATER PILL^.
  8. MIRTAZAPINE [Concomitant]
  9. ANACIN [Concomitant]
  10. FML [Concomitant]
     Dosage: REPORTED AS EYE DROPS.
  11. PREDNISONE [Concomitant]
  12. COSOPT [Concomitant]
  13. ALPHAGAN [Concomitant]

REACTIONS (4)
  - ABDOMINAL PAIN UPPER [None]
  - DYSPEPSIA [None]
  - NAUSEA [None]
  - TOOTH INFECTION [None]
